FAERS Safety Report 20336922 (Version 2)
Quarter: 2022Q1

REPORT INFORMATION
  Report Type: Report from Study
  Country: GB (occurrence: None)
  Receive Date: 20220114
  Receipt Date: 20220217
  Transmission Date: 20220423
  Serious: Yes (Hospitalization)
  Sender: FDA-Public Use
  Company Number: GB-ROCHE-2998592

PATIENT
  Sex: Female
  Weight: 39.3 kg

DRUGS (1)
  1. ATEZOLIZUMAB [Suspect]
     Active Substance: ATEZOLIZUMAB
     Indication: Non-small cell lung cancer
     Dosage: MOST RECENT DOSE OF ATEZOLIZUMAB WAS RECEIVED ON 08/DEC/2021.
     Route: 041
     Dates: start: 20200909

REACTIONS (1)
  - Pneumonia [Not Recovered/Not Resolved]
